FAERS Safety Report 16334153 (Version 7)
Quarter: 2020Q4

REPORT INFORMATION
  Report Type: Report from Study
  Country: US (occurrence: US)
  Receive Date: 20190520
  Receipt Date: 20201109
  Transmission Date: 20210113
  Serious: Yes (Other)
  Sender: FDA-Public Use
  Company Number: PHEH2019US021153

PATIENT
  Age: 73 Year
  Sex: Male

DRUGS (2)
  1. COSENTYX [Suspect]
     Active Substance: SECUKINUMAB
     Indication: PSORIATIC ARTHROPATHY
     Dosage: UNK
     Route: 065
  2. COSENTYX [Suspect]
     Active Substance: SECUKINUMAB
     Dosage: UNK, QMO (MAINTENANCE DOSE)
     Route: 065

REACTIONS (12)
  - Cerebrovascular accident [Unknown]
  - Limb discomfort [Recovered/Resolved]
  - Dysgraphia [Recovered/Resolved]
  - Coordination abnormal [Recovered/Resolved]
  - Pain [Unknown]
  - Hypoaesthesia [Unknown]
  - Skin exfoliation [Recovering/Resolving]
  - White blood cell count increased [Unknown]
  - Back pain [Unknown]
  - Dizziness [Unknown]
  - Pruritus [Unknown]
  - Tendonitis [Not Recovered/Not Resolved]

NARRATIVE: CASE EVENT DATE: 202001
